FAERS Safety Report 5412653-X (Version None)
Quarter: 2007Q3

REPORT INFORMATION
  Report Type: 
  Country: None (occurrence: None)
  Receive Date: 20070813
  Receipt Date: 20070802
  Transmission Date: 20080115
  Serious: Yes (Hospitalization)
  Sender: FDA-Public Use
  Company Number: SE-ROCHE-503541

PATIENT
  Age: 58 Year
  Sex: Female

DRUGS (2)
  1. PEGASYS [Suspect]
     Dosage: DOSAGE REPORTED AS 135 RGW
     Route: 042
     Dates: start: 20060124, end: 20061219
  2. COPEGUS [Suspect]
     Route: 048
     Dates: start: 20060124, end: 20061219

REACTIONS (1)
  - CATARACT [None]
